FAERS Safety Report 18183211 (Version 4)
Quarter: 2021Q1

REPORT INFORMATION
  Report Type: Spontaneous
  Country: ES (occurrence: ES)
  Receive Date: 20200821
  Receipt Date: 20210128
  Transmission Date: 20210419
  Serious: Yes (Other)
  Sender: FDA-Public Use
  Company Number: ES-GILEAD-2020-0467618

PATIENT
  Age: 58 Year
  Sex: Male

DRUGS (5)
  1. CYCLOPHOSPHAMIDE. [Concomitant]
     Active Substance: CYCLOPHOSPHAMIDE
     Indication: BONE MARROW CONDITIONING REGIMEN
     Dosage: UNK
     Dates: start: 20200430
  2. FLUDARABINE [Concomitant]
     Active Substance: FLUDARABINE PHOSPHATE
     Indication: BONE MARROW CONDITIONING REGIMEN
     Dosage: UNK
     Dates: start: 20200430
  3. R GEMOX [Concomitant]
     Dosage: UNK
     Dates: start: 20200331, end: 20200430
  4. YESCARTA [Suspect]
     Active Substance: AXICABTAGENE CILOLEUCEL
     Indication: DIFFUSE LARGE B-CELL LYMPHOMA
  5. YESCARTA [Suspect]
     Active Substance: AXICABTAGENE CILOLEUCEL
     Indication: NEOPLASM
     Dosage: 68 ML
     Route: 042
     Dates: start: 20200505, end: 20200505

REACTIONS (2)
  - Immune effector cell-associated neurotoxicity syndrome [Recovered/Resolved]
  - Cytokine release syndrome [Recovered/Resolved]

NARRATIVE: CASE EVENT DATE: 20200506
